FAERS Safety Report 9253276 (Version 1)
Quarter: 2013Q2

REPORT INFORMATION
  Report Type: Report from Study
  Country: US (occurrence: US)
  Receive Date: 20130424
  Receipt Date: 20130424
  Transmission Date: 20140414
  Serious: Yes (Other)
  Sender: FDA-Public Use
  Company Number: US-US-EMD SERONO, INC.-7206324

PATIENT
  Sex: Female

DRUGS (2)
  1. REBIF [Suspect]
     Indication: MULTIPLE SCLEROSIS
     Route: 058
     Dates: start: 20090622
  2. IBUPROFEN [Concomitant]
     Indication: PREMEDICATION

REACTIONS (2)
  - Suicide attempt [Recovered/Resolved]
  - Injection site erythema [Unknown]
